FAERS Safety Report 6124123-4 (Version None)
Quarter: 2009Q1

REPORT INFORMATION
  Report Type: 
  Country: None (occurrence: None)
  Receive Date: 20090318
  Receipt Date: 20090318
  Transmission Date: 20090719
  Serious: No
  Sender: FDA-Public Use
  Company Number: None

PATIENT
  Age: 18 Year
  Sex: Female
  Weight: 58.9676 kg

DRUGS (4)
  1. LAMICTAL [Suspect]
     Indication: AFFECTIVE DISORDER
     Dosage: 100 2 AT NIGHT PO
     Route: 048
     Dates: start: 20080701
  2. LAMICTAL [Suspect]
     Indication: BIPOLAR DISORDER
     Dosage: 100 2 AT NIGHT PO
     Route: 048
     Dates: start: 20080701
  3. LAMOTRIGINE [Suspect]
     Indication: AFFECTIVE DISORDER
     Dosage: 100 2 AT NIGHT PO
     Route: 048
     Dates: start: 20080801, end: 20090201
  4. LAMOTRIGINE [Suspect]
     Indication: BIPOLAR DISORDER
     Dosage: 100 2 AT NIGHT PO
     Route: 048
     Dates: start: 20080801, end: 20090201

REACTIONS (3)
  - DEPRESSED MOOD [None]
  - DRUG DISPENSING ERROR [None]
  - THERAPEUTIC RESPONSE UNEXPECTED WITH DRUG SUBSTITUTION [None]
